FAERS Safety Report 21582558 (Version 2)
Quarter: 2022Q4

REPORT INFORMATION
  Report Type: Spontaneous
  Country: US (occurrence: US)
  Receive Date: 20221111
  Receipt Date: 20221201
  Transmission Date: 20230113
  Serious: Yes (Hospitalization)
  Sender: FDA-Public Use
  Company Number: US-TEVA-2022-US-2824374

PATIENT
  Age: 17 Year
  Sex: Male

DRUGS (5)
  1. METHYLPREDNISOLONE [Suspect]
     Active Substance: METHYLPREDNISOLONE
     Indication: Optic neuritis
     Dosage: 1200 MILLIGRAM DAILY;
     Route: 042
  2. DOXYCYCLINE [Interacting]
     Active Substance: DOXYCYCLINE
     Indication: Cat scratch disease
     Dosage: 200 MILLIGRAM DAILY;
     Route: 048
  3. PREDNISONE [Interacting]
     Active Substance: PREDNISONE
     Indication: Cat scratch disease
     Dosage: 2 MG/KG DAILY;
     Route: 065
  4. PREDNISONE [Interacting]
     Active Substance: PREDNISONE
     Dosage: 50 MILLIGRAM DAILY;
     Route: 065
  5. RIFAMPIN [Interacting]
     Active Substance: RIFAMPIN
     Indication: Cat scratch disease
     Dosage: 600 MILLIGRAM DAILY;
     Route: 048

REACTIONS (5)
  - Cat scratch disease [Recovering/Resolving]
  - Vitritis [Recovered/Resolved]
  - Retinal haemorrhage [Recovered/Resolved]
  - Optic neuritis [Recovering/Resolving]
  - Drug interaction [Recovering/Resolving]
